FAERS Safety Report 6271543-3 (Version None)
Quarter: 2009Q3

REPORT INFORMATION
  Report Type: 
  Country: None (occurrence: None)
  Receive Date: 20090717
  Receipt Date: 20090708
  Transmission Date: 20100115
  Serious: Yes (Hospitalization)
  Sender: FDA-Public Use
  Company Number: US-AMGEN-STX354903

PATIENT
  Sex: Female

DRUGS (2)
  1. VECTIBIX [Suspect]
     Indication: COLORECTAL CANCER
     Dates: start: 20090501
  2. ELOXATIN (SANOFI) [Concomitant]
     Dates: start: 20090501

REACTIONS (2)
  - CHEST DISCOMFORT [None]
  - DYSPNOEA [None]
